FAERS Safety Report 26022336 (Version 1)
Quarter: 2025Q4

REPORT INFORMATION
  Report Type: Spontaneous
  Country: DZ (occurrence: DZ)
  Receive Date: 20251110
  Receipt Date: 20251110
  Transmission Date: 20260117
  Serious: Yes (Death, Other)
  Sender: SANOFI AVENTIS
  Company Number: DZ-SA-2025SA262567

PATIENT
  Age: 85 Year
  Sex: Female
  Weight: 63 kg

DRUGS (2)
  1. ZALTRAP [Suspect]
     Active Substance: ZIV-AFLIBERCEPT
     Indication: Colon cancer metastatic
     Dosage: 4 MG/KG
     Route: 042
     Dates: start: 20250506, end: 2025
  2. IRINOTECAN [Concomitant]
     Active Substance: IRINOTECAN
     Dosage: 130 UNK
     Route: 042
     Dates: start: 20250506

REACTIONS (2)
  - Hypertensive crisis [Fatal]
  - Gastrointestinal perforation [Fatal]

NARRATIVE: CASE EVENT DATE: 20250602
